FAERS Safety Report 9881914 (Version 1)
Quarter: 2014Q1

REPORT INFORMATION
  Report Type: Spontaneous
  Country: US (occurrence: None)
  Receive Date: 20140205
  Receipt Date: 20140205
  Transmission Date: 20141002
  Serious: Yes (Death)
  Sender: FDA-Public Use
  Company Number: IMP_07408_2014

PATIENT
  Age: 32 Year
  Sex: Male

DRUGS (6)
  1. ALPRAZOLAM [Suspect]
     Indication: PRODUCT USED FOR UNKNOWN INDICATION
     Dosage: DP
  2. HEROIN [Suspect]
     Dosage: DF
  3. COCAINE [Suspect]
     Dosage: DF
  4. DILTIAZEM [Suspect]
  5. DIPHENHYDRAMINE [Suspect]
     Indication: PRODUCT USED FOR UNKNOWN INDICATION
     Dosage: DF
  6. ETHANOL [Suspect]
     Dosage: DF

REACTIONS (3)
  - Poisoning [None]
  - Exposure via ingestion [None]
  - Drug abuse [None]
